FAERS Safety Report 15565749 (Version 2)
Quarter: 2018Q4

REPORT INFORMATION
  Report Type: Spontaneous
  Country: US (occurrence: US)
  Receive Date: 20181030
  Receipt Date: 20181106
  Transmission Date: 20190205
  Serious: No
  Sender: FDA-Public Use
  Company Number: PHEH2018US045161

PATIENT
  Sex: Male

DRUGS (2)
  1. METFORMIN HCL TABLETS [Suspect]
     Active Substance: METFORMIN HYDROCHLORIDE
     Indication: PRODUCT USED FOR UNKNOWN INDICATION
     Dosage: 500 MG, BID (2 IN MORNING AND 2 IN NIGHT)
     Route: 065
  2. METFORMIN HCL TABLETS [Suspect]
     Active Substance: METFORMIN HYDROCHLORIDE
     Dosage: 1000 MG, BID (2 IN MORNING AND 2 IN NIGHT)
     Route: 065

REACTIONS (1)
  - Accidental overdose [Unknown]
